FAERS Safety Report 8064460-X (Version None)
Quarter: 2012Q1

REPORT INFORMATION
  Report Type: 
  Country: None (occurrence: None)
  Receive Date: 20120123
  Receipt Date: 20120113
  Transmission Date: 20120608
  Serious: Yes (Other)
  Sender: FDA-Public Use
  Company Number: PHHY2012FR003938

PATIENT
  Age: 14 Year
  Sex: Female

DRUGS (2)
  1. RITALIN [Suspect]
     Dosage: 10 MG, QD
  2. QUASYSM LP [Suspect]

REACTIONS (6)
  - DYSPNOEA [None]
  - WHEEZING [None]
  - PALLOR [None]
  - FATIGUE [None]
  - SENSE OF OPPRESSION [None]
  - HEADACHE [None]
